FAERS Safety Report 8414269-X (Version None)
Quarter: 2012Q2

REPORT INFORMATION
  Report Type: 
  Country: None (occurrence: None)
  Receive Date: 20120605
  Receipt Date: 20120529
  Transmission Date: 20120825
  Serious: Yes (Other)
  Sender: FDA-Public Use
  Company Number: AU-JNJFOC-20120521163

PATIENT
  Sex: Female

DRUGS (7)
  1. LIPITOR [Concomitant]
  2. STELARA [Suspect]
     Indication: PSORIASIS
     Route: 058
     Dates: start: 20120325
  3. ATACAND HCT [Concomitant]
  4. METHOTREXATE [Concomitant]
  5. FOLIC ACID [Concomitant]
  6. STELARA [Suspect]
     Route: 058
     Dates: start: 20110604
  7. METFORMIN HCL [Concomitant]

REACTIONS (1)
  - SPLENIC LESION [None]
